FAERS Safety Report 19281459 (Version 1)
Quarter: 2021Q2

REPORT INFORMATION
  Report Type: Report from Study
  Country: GB (occurrence: GB)
  Receive Date: 20210520
  Receipt Date: 20210520
  Transmission Date: 20210717
  Serious: Yes (Other)
  Sender: FDA-Public Use
  Company Number: GB-ADVANZ PHARMA-202105003539

PATIENT

DRUGS (4)
  1. PREDNISOLONE. [Suspect]
     Active Substance: PREDNISOLONE
     Indication: PRODUCT USED FOR UNKNOWN INDICATION
     Dosage: UNKNOWN
     Route: 065
  2. IMRALDI [Suspect]
     Active Substance: ADALIMUMAB
     Dosage: 40 MG (1 IN 2 WEEK) (MAINTAINANCE)
     Route: 058
  3. IMRALDI [Suspect]
     Active Substance: ADALIMUMAB
     Dosage: 80 MG (WEEK 2)
     Route: 058
  4. IMRALDI [Suspect]
     Active Substance: ADALIMUMAB
     Indication: CROHN^S DISEASE
     Dosage: 160 MG (WEEK 0)
     Route: 058
     Dates: start: 20200909

REACTIONS (6)
  - Injection site pain [Unknown]
  - Swelling face [Unknown]
  - Decreased appetite [Unknown]
  - Crohn^s disease [Unknown]
  - Fatigue [Unknown]
  - Anaemia [Unknown]
